FAERS Safety Report 9963393 (Version 2)
Quarter: 2014Q1

REPORT INFORMATION
  Report Type: Report from Study
  Country: CA (occurrence: CA)
  Receive Date: 20140305
  Receipt Date: 20140305
  Transmission Date: 20141002
  Serious: Yes (Hospitalization, Other)
  Sender: FDA-Public Use
  Company Number: CA-BRISTOL-MYERS SQUIBB COMPANY-15014640

PATIENT
  Age: 60 Year
  Sex: Male

DRUGS (7)
  1. ORENCIA [Suspect]
     Indication: RHEUMATOID ARTHRITIS
     Dosage: INF:42; LAST INF: 11MAR10,RECENT INF:10JUN10,3NOV11?3E73716-MAR16
     Route: 042
     Dates: start: 20080818
  2. METHOTREXATE SODIUM INJ [Concomitant]
  3. LYRICA [Concomitant]
  4. LOSEC [Concomitant]
  5. ACTONEL [Concomitant]
  6. PLAQUENIL [Concomitant]
  7. CORTISONE [Concomitant]

REACTIONS (11)
  - Sciatica [Unknown]
  - Loss of consciousness [Unknown]
  - Hepatic cirrhosis [Unknown]
  - Rheumatoid arthritis [Recovered/Resolved]
  - Paraesthesia [Unknown]
  - Fall [Unknown]
  - Back disorder [Recovered/Resolved]
  - Bursitis [Unknown]
  - Contusion [Unknown]
  - Rib fracture [Unknown]
  - Joint injury [Unknown]
